FAERS Safety Report 6058912-1 (Version None)
Quarter: 2009Q1

REPORT INFORMATION
  Report Type: 
  Country: None (occurrence: None)
  Receive Date: 20090130
  Receipt Date: 20090122
  Transmission Date: 20090719
  Serious: Yes (Hospitalization, Other)
  Sender: FDA-Public Use
  Company Number: US-PFIZER INC-2009159658

PATIENT
  Sex: Female

DRUGS (11)
  1. CELEBREX [Suspect]
     Indication: ARTHRITIS
     Dosage: 200 MG, UNK
     Dates: start: 20010101
  2. CELEBREX [Suspect]
     Indication: NECK PAIN
  3. BEXTRA [Suspect]
     Indication: ARTHRITIS
     Dosage: 20 MG, 1X/DAY
     Dates: start: 20020709, end: 20040501
  4. BEXTRA [Suspect]
     Indication: PAIN
  5. HYDROCHLOROTHIAZIDE [Concomitant]
     Indication: OEDEMA PERIPHERAL
  6. VALIUM [Concomitant]
     Indication: BACK PAIN
     Dosage: 5 MG, AS NEEDED
  7. VALIUM [Concomitant]
     Indication: MUSCULOSKELETAL PAIN
  8. LORTAB [Concomitant]
     Indication: BACK PAIN
  9. LORTAB [Concomitant]
     Indication: MUSCULOSKELETAL PAIN
  10. ALBUTEROL SULATE [Concomitant]
     Dosage: UNK
  11. PAXIL [Concomitant]

REACTIONS (1)
  - CEREBROVASCULAR ACCIDENT [None]
